FAERS Safety Report 5905062-8 (Version None)
Quarter: 2008Q4

REPORT INFORMATION
  Report Type: 
  Country: None (occurrence: None)
  Receive Date: 20081001
  Receipt Date: 20080924
  Transmission Date: 20090506
  Serious: Yes (Other)
  Sender: FDA-Public Use
  Company Number: US-ASTRAZENECA-2008UW20121

PATIENT
  Age: 49 Year
  Sex: Male
  Weight: 75 kg

DRUGS (3)
  1. CRESTOR [Suspect]
     Indication: HYPERCHOLESTEROLAEMIA
     Route: 048
     Dates: start: 20070101
  2. COMBIGAN [Concomitant]
  3. LUMIGAN [Concomitant]

REACTIONS (1)
  - COELIAC DISEASE [None]
